FAERS Safety Report 23447839 (Version 2)
Quarter: 2024Q1

REPORT INFORMATION
  Report Type: Spontaneous
  Country: FR (occurrence: FR)
  Receive Date: 20240126
  Receipt Date: 20240207
  Transmission Date: 20240410
  Serious: Yes (Disabling, Other)
  Sender: FDA-Public Use
  Company Number: None

PATIENT
  Age: 52 Year
  Sex: Female
  Weight: 65 kg

DRUGS (2)
  1. EMGALITY [Suspect]
     Active Substance: GALCANEZUMAB-GNLM
     Indication: Migraine
     Dosage: 2 DOSAGE FORM, SINGLE
     Route: 058
     Dates: start: 20221012, end: 20221012
  2. EMGALITY [Suspect]
     Active Substance: GALCANEZUMAB-GNLM
     Dosage: 1 DOSAGE FORM, MONTHLY (1/M)
     Route: 058
     Dates: end: 20230412

REACTIONS (6)
  - Articular calcification [Not Recovered/Not Resolved]
  - Arthralgia [Recovered/Resolved]
  - Bursitis [Recovering/Resolving]
  - Renal cyst [Recovered/Resolved]
  - Hepatic cyst [Recovered/Resolved]
  - Synovial cyst [Recovering/Resolving]

NARRATIVE: CASE EVENT DATE: 20221027
